FAERS Safety Report 8644486 (Version 3)
Quarter: 2013Q2

REPORT INFORMATION
  Report Type: Spontaneous
  Country: US (occurrence: US)
  Receive Date: 20120629
  Receipt Date: 20130430
  Transmission Date: 20140414
  Serious: Yes (Other)
  Sender: FDA-Public Use
  Company Number: US-ELI_LILLY_AND_COMPANY-US201206007452

PATIENT
  Age: 73 Year
  Sex: Female
  Weight: 63 kg

DRUGS (10)
  1. FORTEO [Suspect]
     Indication: OSTEOPOROSIS
     Dosage: 20 UG, QD
     Route: 058
     Dates: start: 20120417
  2. CITALOPRAM [Concomitant]
     Dosage: UNK, QD
     Route: 048
  3. ALPRAZOLAM [Concomitant]
     Dosage: 0.25 MG, PRN
  4. HYDROCHLOORTHIAZIDE [Concomitant]
     Dosage: 25 MG, QD
     Route: 048
  5. WELLBUTRIN [Concomitant]
     Dosage: 150 MG, QD
  6. VITAMINS [Concomitant]
     Dosage: UNK
  7. EXCEDRIN                                /USA/ [Concomitant]
     Dosage: UNK, QD
     Route: 048
  8. CALCIUM [Concomitant]
     Dosage: UNK, TID
     Route: 048
  9. REQUIP [Concomitant]
     Dosage: 0.5 MG, EACH EVENING
     Route: 048
  10. VITAMIN D [Concomitant]
     Dosage: 1000 U, QD
     Route: 048

REACTIONS (1)
  - Invasive ductal breast carcinoma [Not Recovered/Not Resolved]
